FAERS Safety Report 25336563 (Version 1)
Quarter: 2025Q2

REPORT INFORMATION
  Report Type: Spontaneous
  Country: US (occurrence: US)
  Receive Date: 20250520
  Receipt Date: 20250520
  Transmission Date: 20250716
  Serious: Yes (Death)
  Sender: LEO PHARM
  Company Number: US-LEO Pharma-379777

PATIENT
  Age: 31 Year
  Sex: Female

DRUGS (1)
  1. TACROLIMUS [Suspect]
     Active Substance: TACROLIMUS
     Indication: Kaposi sarcoma inflammatory cytokine syndrome

REACTIONS (1)
  - Toxicity to various agents [Fatal]
